FAERS Safety Report 5324125-1 (Version None)
Quarter: 2007Q2

REPORT INFORMATION
  Report Type: 
  Country: None (occurrence: None)
  Receive Date: 20070514
  Receipt Date: 20060803
  Transmission Date: 20071010
  Serious: No
  Sender: FDA-Public Use
  Company Number: A0615063A

PATIENT
  Sex: Male

DRUGS (1)
  1. NABUMETONE [Suspect]
     Indication: OSTEOARTHRITIS
     Dosage: 500MG TWICE PER DAY
     Route: 048

REACTIONS (3)
  - ARTHRALGIA [None]
  - DRUG INEFFECTIVE [None]
  - JOINT SWELLING [None]
